FAERS Safety Report 23192146 (Version 1)
Quarter: 2023Q4

REPORT INFORMATION
  Report Type: Spontaneous
  Country: US (occurrence: None)
  Receive Date: 20231116
  Receipt Date: 20231116
  Transmission Date: 20240109
  Serious: Yes (Hospitalization)
  Sender: FDA-Public Use
  Company Number: None

PATIENT
  Age: 71 Year
  Sex: Female
  Weight: 121.1 kg

DRUGS (3)
  1. PACLITAXEL [Suspect]
     Active Substance: PACLITAXEL
     Dates: end: 20231103
  2. PERTUZUMAB [Suspect]
     Active Substance: PERTUZUMAB
     Dates: end: 20231019
  3. HERCEPTIN [Suspect]
     Active Substance: TRASTUZUMAB
     Dates: end: 20231010

REACTIONS (11)
  - Rash [None]
  - Mucosal inflammation [None]
  - Electrolyte imbalance [None]
  - Therapy interrupted [None]
  - Pruritus [None]
  - Drug ineffective [None]
  - Malaise [None]
  - Insomnia [None]
  - Skin burning sensation [None]
  - Skin ulcer [None]
  - Candida infection [None]

NARRATIVE: CASE EVENT DATE: 20231110
